FAERS Safety Report 24077995 (Version 6)
Quarter: 2025Q2

REPORT INFORMATION
  Report Type: Report from Study
  Country: US (occurrence: US)
  Receive Date: 20240711
  Receipt Date: 20250603
  Transmission Date: 20250717
  Serious: Yes (Other)
  Sender: NOVARTIS
  Company Number: US-002147023-NVSC2024US030621

PATIENT
  Sex: Female
  Weight: 58 kg

DRUGS (3)
  1. KESIMPTA [Suspect]
     Active Substance: OFATUMUMAB
     Indication: Multiple sclerosis
     Dosage: 1 DOSAGE FORM (20MG/0.4 ML), QMO
     Route: 058
  2. KESIMPTA [Suspect]
     Active Substance: OFATUMUMAB
     Dosage: 20 MG, QMO
     Route: 058
  3. BOTOX [Concomitant]
     Active Substance: ONABOTULINUMTOXINA
     Indication: Urinary tract infection
     Route: 065

REACTIONS (13)
  - Multiple sclerosis [Not Recovered/Not Resolved]
  - Lymphocyte count decreased [Unknown]
  - Fall [Unknown]
  - Fatigue [Unknown]
  - Concussion [Unknown]
  - Head injury [Unknown]
  - Back injury [Unknown]
  - Memory impairment [Unknown]
  - Headache [Not Recovered/Not Resolved]
  - Facial pain [Unknown]
  - Sinus disorder [Unknown]
  - Injection site pain [Unknown]
  - Off label use [Unknown]
